FAERS Safety Report 11155941 (Version 22)
Quarter: 2017Q2

REPORT INFORMATION
  Report Type: Report from Study
  Country: NL (occurrence: NL)
  Receive Date: 20150602
  Receipt Date: 20170619
  Transmission Date: 20170829
  Serious: Yes (Other)
  Sender: FDA-Public Use
  Company Number: NL-SA-2015SA071357

PATIENT
  Age: 38 Year
  Sex: Female
  Weight: 62 kg

DRUGS (25)
  1. LEMTRADA [Suspect]
     Active Substance: ALEMTUZUMAB
     Indication: MULTIPLE SCLEROSIS RELAPSE
     Route: 041
     Dates: start: 20150505, end: 20150509
  2. BACLOFEN. [Concomitant]
     Active Substance: BACLOFEN
     Indication: PROPHYLAXIS
     Route: 048
     Dates: start: 20150501
  3. CLEMASTINE [Concomitant]
     Active Substance: CLEMASTINE
     Indication: PROPHYLAXIS
     Dosage: AS CURATIVE
     Route: 048
     Dates: start: 20150519, end: 20150618
  4. MOVICOLON [Concomitant]
     Active Substance: POLYETHYLENE GLYCOL 3350\POTASSIUM CHLORIDE\SODIUM BICARBONATE\SODIUM CHLORIDE
     Dosage: DOSE UNIT: SACHET
     Route: 048
     Dates: start: 20150608, end: 20150831
  5. LEMTRADA [Suspect]
     Active Substance: ALEMTUZUMAB
     Indication: MULTIPLE SCLEROSIS RELAPSE
     Route: 041
     Dates: start: 20160404, end: 20160406
  6. METHYLPREDNISOLONE. [Concomitant]
     Active Substance: METHYLPREDNISOLONE
     Indication: PROPHYLAXIS
     Route: 042
     Dates: start: 20150505, end: 20150508
  7. METHYLPREDNISOLONE. [Concomitant]
     Active Substance: METHYLPREDNISOLONE
     Indication: PROPHYLAXIS
     Dosage: AS CURATIVE
     Route: 042
     Dates: start: 20150608, end: 20150610
  8. METHYLPREDNISOLONE. [Concomitant]
     Active Substance: METHYLPREDNISOLONE
     Indication: DRUG THERAPY
     Dosage: AS CURATIVE
     Route: 042
     Dates: start: 20150608, end: 20150610
  9. PARACETAMOL [Concomitant]
     Active Substance: ACETAMINOPHEN
     Indication: PROPHYLAXIS
     Route: 048
     Dates: start: 20150504
  10. CLEMASTINE [Concomitant]
     Active Substance: CLEMASTINE
     Indication: PROPHYLAXIS
     Route: 048
     Dates: start: 20150505, end: 20150510
  11. METHYLPREDNISOLONE. [Concomitant]
     Active Substance: METHYLPREDNISOLONE
     Indication: DRUG THERAPY
     Route: 042
     Dates: start: 20160404, end: 20160406
  12. MIRABEGRON [Concomitant]
     Active Substance: MIRABEGRON
     Indication: PROPHYLAXIS
     Route: 048
     Dates: start: 20150505
  13. PARACETAMOL [Concomitant]
     Active Substance: ACETAMINOPHEN
     Indication: PROPHYLAXIS
     Route: 048
     Dates: start: 20160404
  14. ACICLOVIR [Concomitant]
     Active Substance: ACYCLOVIR
     Indication: PROPHYLAXIS
     Route: 048
     Dates: start: 20160404, end: 20160501
  15. BACLOFEN. [Concomitant]
     Active Substance: BACLOFEN
     Indication: MULTIPLE SCLEROSIS
     Route: 048
     Dates: start: 20150501
  16. RANITIDINE. [Concomitant]
     Active Substance: RANITIDINE
     Indication: PROPHYLAXIS
     Route: 048
     Dates: start: 20160404, end: 20160406
  17. METHYLPREDNISOLONE. [Concomitant]
     Active Substance: METHYLPREDNISOLONE
     Indication: DRUG THERAPY
     Route: 042
     Dates: start: 20150505, end: 20150508
  18. METHYLPREDNISOLONE. [Concomitant]
     Active Substance: METHYLPREDNISOLONE
     Indication: PROPHYLAXIS
     Route: 042
     Dates: start: 20160404, end: 20160406
  19. NIQUITIN [Concomitant]
     Active Substance: NICOTINE
     Indication: PROPHYLAXIS
     Dosage: NIQUITIN PLASTER
     Route: 062
     Dates: start: 20150501
  20. ACICLOVIR [Concomitant]
     Active Substance: ACYCLOVIR
     Indication: PROPHYLAXIS
     Route: 048
     Dates: start: 20150505, end: 20150603
  21. RANITIDINE. [Concomitant]
     Active Substance: RANITIDINE
     Indication: PROPHYLAXIS
     Route: 048
     Dates: start: 20150507, end: 20150602
  22. RANITIDINE. [Concomitant]
     Active Substance: RANITIDINE
     Indication: PROPHYLAXIS
     Route: 048
     Dates: start: 20150608, end: 20150610
  23. FOLIC ACID. [Concomitant]
     Active Substance: FOLIC ACID
     Indication: PROPHYLAXIS
     Route: 048
     Dates: start: 20150501
  24. COLECALCIFEROL [Concomitant]
     Active Substance: CHOLECALCIFEROL
     Indication: PROPHYLAXIS
     Route: 048
     Dates: start: 20150505
  25. RANITIDINE. [Concomitant]
     Active Substance: RANITIDINE
     Indication: PROPHYLAXIS
     Route: 048
     Dates: start: 20150505, end: 20150509

REACTIONS (32)
  - Palpitations [Recovered/Resolved]
  - Headache [Recovered/Resolved]
  - Alopecia [Not Recovered/Not Resolved]
  - Influenza [Recovered/Resolved]
  - Multiple sclerosis [Not Recovered/Not Resolved]
  - Diarrhoea [Recovered/Resolved]
  - Rash [Recovered/Resolved]
  - Localised oedema [Recovered/Resolved]
  - Gastroenteritis viral [Recovered/Resolved]
  - Gastroenteritis viral [Recovered/Resolved]
  - Oedema peripheral [Recovered/Resolved]
  - Alopecia [Recovered/Resolved]
  - Back pain [Recovered/Resolved]
  - Maculopathy [Recovered/Resolved]
  - Face oedema [Recovering/Resolving]
  - Cardiac disorder [Not Recovered/Not Resolved]
  - Pyrexia [Recovered/Resolved]
  - Haematoma [Recovered/Resolved]
  - Fatigue [Not Recovered/Not Resolved]
  - Gastroenteritis viral [Recovered/Resolved]
  - Headache [Not Recovered/Not Resolved]
  - Tricuspid valve incompetence [Not Recovered/Not Resolved]
  - Pyrexia [Recovered/Resolved]
  - Abdominal pain [Recovered/Resolved]
  - Multiple sclerosis relapse [Recovered/Resolved]
  - Urticaria [Recovered/Resolved]
  - Cardiac disorder [Recovered/Resolved]
  - Nail infection [Not Recovered/Not Resolved]
  - Melanocytic naevus [Recovered/Resolved]
  - Mole excision [Recovered/Resolved]
  - Dizziness [Recovered/Resolved]
  - Influenza [Recovered/Resolved]

NARRATIVE: CASE EVENT DATE: 20150505
